FAERS Safety Report 8763909 (Version 1)
Quarter: 2012Q4

REPORT INFORMATION
  Report Type: 
  Country: AU (occurrence: AU)
  Receive Date: 20120831
  Receipt Date: 20120831
  Transmission Date: 20130627
  Serious: Yes (Hospitalization)
  Sender: FDA-Public Use
  Company Number: AU-B.I. PHARMACEUTICALS,INC./RIDGEFIELD-2012-AU-01543AU

PATIENT
  Age: 50 Year
  Sex: Male

DRUGS (7)
  1. TRAJENTA [Suspect]
     Dosage: 5 mg
  2. ZYPREXA RELPREVV [Suspect]
     Indication: SCHIZOPHRENIA
     Dosage: 21.4286 mg
     Route: 030
     Dates: end: 20120816
  3. PHYSIOTENS [Concomitant]
     Dosage: 200 mcg
  4. COVERAM [Concomitant]
     Dosage: 5 mg
  5. VALIUM [Concomitant]
  6. DIAMICRON [Concomitant]
     Dosage: 120 mg
  7. LIPITOR [Concomitant]
     Dosage: 20 mg

REACTIONS (9)
  - Disorientation [Recovered/Resolved]
  - Delirium [Recovered/Resolved]
  - Ataxia [Recovered/Resolved]
  - Sedation [Recovered/Resolved]
  - Blood pressure decreased [Recovered/Resolved]
  - Confusional state [Recovered/Resolved]
  - Agitation [Recovered/Resolved]
  - Vomiting [Recovered/Resolved]
  - Urinary incontinence [Recovered/Resolved]
